FAERS Safety Report 19142300 (Version 1)
Quarter: 2021Q2

REPORT INFORMATION
  Report Type: Report from Study
  Country: US (occurrence: US)
  Receive Date: 20210416
  Receipt Date: 20210416
  Transmission Date: 20210717
  Serious: No
  Sender: FDA-Public Use
  Company Number: US-ACADIA PHARMACEUTICALS INC.-ACA-2021-PIM-001107

PATIENT
  Age: 80 Year
  Sex: Female

DRUGS (9)
  1. NUPLAZID [Suspect]
     Active Substance: PIMAVANSERIN TARTRATE
     Indication: HALLUCINATION
     Dosage: 34 MILLIGRAM, QD
     Route: 048
     Dates: end: 20210322
  2. SINEMET [Concomitant]
     Active Substance: CARBIDOPA\LEVODOPA
     Dosage: 25/100 BID
  3. FLONASE [Concomitant]
     Active Substance: FLUTICASONE PROPIONATE
  4. XARELTO [Concomitant]
     Active Substance: RIVAROXABAN
     Dosage: 20 MILLIGRAM, QD
  5. ATENOLOL. [Concomitant]
     Active Substance: ATENOLOL
     Dosage: 23 MILLIGRAM, QD
  6. ZONEGRAN [Concomitant]
     Active Substance: ZONISAMIDE
     Dosage: 25 MILLIGRAM, QD
  7. GABAPENTIN. [Concomitant]
     Active Substance: GABAPENTIN
     Dosage: 100 MILLIGRAM QHS
  8. VITAMIN B12 [Concomitant]
     Active Substance: CYANOCOBALAMIN
     Dosage: QD
  9. NUPLAZID [Suspect]
     Active Substance: PIMAVANSERIN TARTRATE
     Indication: PARKINSON^S DISEASE
     Dosage: 34 MILLIGRAM, QD
     Route: 048
     Dates: start: 20201210, end: 202012

REACTIONS (2)
  - Hallucination [Unknown]
  - Dizziness [Unknown]

NARRATIVE: CASE EVENT DATE: 202012
